FAERS Safety Report 25986365 (Version 1)
Quarter: 2025Q4

REPORT INFORMATION
  Report Type: Spontaneous
  Country: EU (occurrence: EU)
  Receive Date: 20251031
  Receipt Date: 20251031
  Transmission Date: 20260117
  Serious: Yes (Death, Other)
  Sender: JOHNSON AND JOHNSON
  Company Number: EU-JNJFOC-20251037983

PATIENT

DRUGS (5)
  1. BALVERSA [Suspect]
     Active Substance: ERDAFITINIB
     Indication: Transitional cell carcinoma metastatic
     Dosage: 1 LINE OF SYSTEMIC THERAPY, 1 DOSE
     Route: 065
  2. BALVERSA [Suspect]
     Active Substance: ERDAFITINIB
     Dosage: 1 LINE OF SYSTEMIC THERAPY
     Route: 065
  3. BALVERSA [Suspect]
     Active Substance: ERDAFITINIB
     Dosage: 1 LINE OF SYSTEMIC THERAPY
     Route: 065
  4. CISPLATIN [Suspect]
     Active Substance: CISPLATIN
     Indication: Transitional cell carcinoma metastatic
     Route: 065
  5. CARBOPLATIN [Suspect]
     Active Substance: CARBOPLATIN
     Indication: Transitional cell carcinoma metastatic
     Route: 065

REACTIONS (5)
  - Death [Fatal]
  - Retinopathy [Unknown]
  - Eye disorder [Unknown]
  - Skin disorder [Unknown]
  - Nail disorder [Unknown]
